FAERS Safety Report 5219052-4 (Version None)
Quarter: 2007Q1

REPORT INFORMATION
  Report Type: 
  Country: None (occurrence: None)
  Receive Date: 20070124
  Receipt Date: 20070124
  Transmission Date: 20070707
  Serious: Yes (Hospitalization)
  Sender: FDA-Public Use
  Company Number: None

PATIENT
  Age: 74 Year
  Sex: Male
  Weight: 91.5 kg

DRUGS (1)
  1. MORPHINE [Suspect]
     Indication: ABDOMINAL PAIN UPPER
     Dosage: 1MG  ONE  IV BOLUS
     Route: 040
     Dates: start: 20061230, end: 20061230

REACTIONS (3)
  - ABNORMAL BEHAVIOUR [None]
  - MEDICATION ERROR [None]
  - PRURITUS [None]
